FAERS Safety Report 6713285-3 (Version None)
Quarter: 2010Q2

REPORT INFORMATION
  Report Type: 
  Country: None (occurrence: None)
  Receive Date: 20100503
  Receipt Date: 20090625
  Transmission Date: 20101027
  Serious: No
  Sender: FDA-Public Use
  Company Number: 2009-00356

PATIENT
  Age: 25 Year
  Sex: Male
  Weight: 117.9352 kg

DRUGS (1)
  1. ZICAM COLD REMEDY GEL SWABS [Suspect]
     Dates: start: 20090605

REACTIONS (1)
  - ANOSMIA [None]
